FAERS Safety Report 11540530 (Version 1)
Quarter: 2015Q3

REPORT INFORMATION
  Report Type: Spontaneous
  Country: US (occurrence: US)
  Receive Date: 20150923
  Receipt Date: 20150923
  Transmission Date: 20151125
  Serious: No
  Sender: FDA-Public Use
  Company Number: US-BEH-2015049129

PATIENT
  Sex: Female
  Weight: 57 kg

DRUGS (19)
  1. ZOCOR [Concomitant]
     Active Substance: SIMVASTATIN
  2. MULTI VITAMIN [Concomitant]
     Active Substance: VITAMINS
  3. NORMAL SALINE [Concomitant]
     Active Substance: SODIUM CHLORIDE
  4. HYDROCHLOROTHYAZIDE [Concomitant]
     Active Substance: HYDROCHLOROTHIAZIDE
  5. VASODIAL [Concomitant]
  6. FERROUS SULFATE [Concomitant]
     Active Substance: FERROUS SULFATE\FERROUS SULFATE, DRIED
  7. HEPARIN [Concomitant]
     Active Substance: HEPARIN SODIUM
  8. EPIPEN [Concomitant]
     Active Substance: EPINEPHRINE
  9. PRIVIGEN [Suspect]
     Active Substance: HUMAN IMMUNOGLOBULIN G
     Indication: IMMUNODEFICIENCY COMMON VARIABLE
     Route: 042
  10. ACETAMINOPHEN. [Concomitant]
     Active Substance: ACETAMINOPHEN
  11. DIPHENHYDRAMINE. [Concomitant]
     Active Substance: DIPHENHYDRAMINE
  12. CO-Q10 [Concomitant]
  13. OMEGA 3 SOFTGEL [Concomitant]
  14. SIMCOR [Concomitant]
     Active Substance: NIACIN\SIMVASTATIN
  15. PRILOSEC [Concomitant]
     Active Substance: OMEPRAZOLE MAGNESIUM
  16. ASPIRIN. [Concomitant]
     Active Substance: ASPIRIN
  17. GLUCOSAMINE [Concomitant]
     Active Substance: GLUCOSAMINE
  18. URSODIAL [Concomitant]
  19. TRAMADOL. [Concomitant]
     Active Substance: TRAMADOL

REACTIONS (1)
  - Drug dose omission [Unknown]
